FAERS Safety Report 8020012-9 (Version None)
Quarter: 2012Q1

REPORT INFORMATION
  Report Type: 
  Country: None (occurrence: None)
  Receive Date: 20120103
  Receipt Date: 20111219
  Transmission Date: 20120608
  Serious: Yes (Other)
  Sender: FDA-Public Use
  Company Number: PHHY2011MX113666

PATIENT
  Sex: Female

DRUGS (8)
  1. LOSARTAN POTASSIUM [Suspect]
     Dosage: UNK UKN, UNK
     Dates: start: 20111001, end: 20111219
  2. SENNOSIDE [Concomitant]
     Indication: CONSTIPATION
     Dosage: 2 DF (UNK), DAILY
     Dates: start: 20091201
  3. ESTROGENS [Concomitant]
     Indication: VULVOVAGINAL DRYNESS
     Dosage: UNK
     Route: 003
     Dates: start: 20091201
  4. PRAVASTATIN [Concomitant]
     Indication: BLOOD CHOLESTEROL INCREASED
     Dosage: 1 DF(UNK), DAILY
     Dates: start: 20061201
  5. PRAVASTATIN [Concomitant]
     Indication: BLOOD TRIGLYCERIDES INCREASED
  6. ACETYLSALICYLIC ACID SRT [Concomitant]
     Indication: PROPHYLAXIS
     Dosage: 1 DF (UNK), DAILY
     Dates: start: 20061201
  7. DIOVAN [Suspect]
     Indication: HYPERTENSION
     Dosage: 02 TABLETS (320 MG) PER DAY
     Dates: start: 20081201
  8. HYDROCHLOROTHIAZIDE [Concomitant]
     Indication: HYPERTENSION
     Dosage: 1 DF (UNK), DAILY
     Dates: start: 20081201

REACTIONS (1)
  - BLOOD PRESSURE INCREASED [None]
